FAERS Safety Report 4693216-0 (Version None)
Quarter: 2005Q2

REPORT INFORMATION
  Report Type: 
  Country: None (occurrence: None)
  Receive Date: 20050608
  Receipt Date: 20040630
  Transmission Date: 20051028
  Serious: Yes (Other)
  Sender: FDA-Public Use
  Company Number: 372615

PATIENT
  Sex: 0

DRUGS (2)
  1. ACCUTANE [Suspect]
     Indication: ACNE
     Dates: start: 20030526, end: 20030615
  2. ISOTRETINOIN [Suspect]
     Indication: ACNE
     Dates: start: 20030715, end: 20031015

REACTIONS (2)
  - ABORTION INDUCED [None]
  - PREGNANCY [None]
